FAERS Safety Report 5377783-X (Version None)
Quarter: 2007Q3

REPORT INFORMATION
  Report Type: 
  Country: None (occurrence: None)
  Receive Date: 20070703
  Receipt Date: 20070626
  Transmission Date: 20080115
  Serious: Yes (Death, Other)
  Sender: FDA-Public Use
  Company Number: US-PFIZER INC-2007052064

PATIENT
  Age: 86 Year
  Sex: Female

DRUGS (2)
  1. GEODON [Suspect]
     Indication: DEMENTIA
  2. GEODON [Suspect]
     Indication: PSYCHOTIC DISORDER

REACTIONS (5)
  - DYSTONIA [None]
  - MYOCARDIAL INFARCTION [None]
  - PARKINSONIAN REST TREMOR [None]
  - TARDIVE DYSKINESIA [None]
  - TREMOR [None]
